FAERS Safety Report 7626766-5 (Version None)
Quarter: 2011Q3

REPORT INFORMATION
  Report Type: 
  Country: None (occurrence: None)
  Receive Date: 20110721
  Receipt Date: 20110712
  Transmission Date: 20111222
  Serious: Yes (Other)
  Sender: FDA-Public Use
  Company Number: NL-TEVA-290660ISR

PATIENT
  Sex: Female
  Weight: 120 kg

DRUGS (6)
  1. LEVOCETIRIZINE DIHYDROCHLORIDE [Concomitant]
     Dosage: 5 MILLIGRAM;
  2. TETRACYCLINE [Suspect]
     Indication: ACNE
     Dates: start: 20110101, end: 20110605
  3. ISOTRETINOIN [Suspect]
     Dates: start: 20110601
  4. OMEPRAZOLE [Concomitant]
     Dosage: 20 MILLIGRAM;
  5. VENLAFAXINE [Concomitant]
     Dosage: 75 MILLIGRAM;
  6. LEVOCETIRIZINE DIHYDROCHLORIDE [Concomitant]
     Dosage: 5 MILLIGRAM;

REACTIONS (2)
  - INTRACRANIAL PRESSURE INCREASED [None]
  - PAPILLOEDEMA [None]
